FAERS Safety Report 7482625-2 (Version None)
Quarter: 2011Q2

REPORT INFORMATION
  Report Type: 
  Country: None (occurrence: None)
  Receive Date: 20110516
  Receipt Date: 20110503
  Transmission Date: 20111010
  Serious: Yes (Hospitalization)
  Sender: FDA-Public Use
  Company Number: PHHY2011US20776

PATIENT
  Sex: Female

DRUGS (10)
  1. COLACE [Concomitant]
     Indication: CONSTIPATION
     Dosage: 50 MG, UNK
     Route: 048
  2. PULMICORT [Concomitant]
     Dosage: 180 UG, BID
  3. HYDREA [Concomitant]
     Indication: SICKLE CELL ANAEMIA
     Dosage: 1000 MG, UNK
     Route: 048
  4. GABAPENTIN [Concomitant]
     Indication: PAIN
     Dosage: 400 MG, UNK
     Route: 048
  5. NORCO [Concomitant]
     Indication: PAIN
  6. ALBUTEROL [Concomitant]
     Indication: WHEEZING
  7. VISTARIL [Concomitant]
     Indication: PAIN
     Dosage: 25 MG, UNK
     Route: 048
  8. IBUPROFEN [Concomitant]
     Indication: PAIN
     Dosage: 300 MG, UNK
     Route: 048
  9. EXJADE [Suspect]
     Indication: SICKLE CELL ANAEMIA
     Dosage: 625 MG, QD
     Route: 048
  10. FOLIC ACID [Concomitant]
     Indication: SICKLE CELL ANAEMIA
     Dosage: 1 MG, UNK
     Route: 048

REACTIONS (3)
  - SICKLE CELL ANAEMIA WITH CRISIS [None]
  - PAIN [None]
  - PAIN IN EXTREMITY [None]
